FAERS Safety Report 5336447-9 (Version None)
Quarter: 2007Q2

REPORT INFORMATION
  Report Type: 
  Country: None (occurrence: None)
  Receive Date: 20070529
  Receipt Date: 20070518
  Transmission Date: 20071010
  Serious: Yes (Death, Other)
  Sender: FDA-Public Use
  Company Number: ES-JNJFOC-20070505784

PATIENT
  Age: 49 Year
  Sex: Male

DRUGS (4)
  1. REOPRO [Suspect]
  2. REOPRO [Suspect]
     Indication: DRUG USE FOR UNKNOWN INDICATION
  3. ASPIRIN [Concomitant]
  4. CLOPIDOGREL [Concomitant]

REACTIONS (2)
  - CEREBRAL HAEMORRHAGE [None]
  - CORONARY ARTERY STENOSIS [None]
